FAERS Safety Report 9850377 (Version 1)
Quarter: 2013Q4

REPORT INFORMATION
  Report Type: Spontaneous
  Country: US (occurrence: None)
  Receive Date: 20131226
  Receipt Date: 20131226
  Transmission Date: 20140711
  Serious: Yes (Hospitalization)
  Sender: FDA-Public Use
  Company Number: PHEH2012US017907

PATIENT
  Age: 79 Year
  Sex: Female
  Weight: 65.3 kg

DRUGS (8)
  1. DIOVAN [Suspect]
     Indication: BLOOD CHOLESTEROL INCREASED
  2. PROTONIX [Suspect]
     Dosage: UNK UKN, UNK
  3. LIPITOR (ATORVASTATIN CALCIUM) [Suspect]
     Indication: BLOOD CHOLESTEROL INCREASED
     Dosage: UNK UKN, UNK
  4. TRICOR (FENOFIBRATE) [Concomitant]
  5. PROVENTIL (SALBUTAMOL SULFATE) [Concomitant]
  6. FLOVENT (FLUTICASONE PROPIONATE) [Concomitant]
  7. NASONEX (MOMETASONE FUROATE) [Concomitant]
  8. AMARYL (GLIMEPIRIDE) [Concomitant]

REACTIONS (12)
  - Influenza like illness [None]
  - Palpitations [None]
  - Burning sensation [None]
  - Chest pain [None]
  - Dizziness [None]
  - Sneezing [None]
  - Cough [None]
  - Oropharyngeal pain [None]
  - Eye pain [None]
  - Dysphonia [None]
  - Heart rate irregular [None]
  - Muscle spasms [None]
